FAERS Safety Report 18586154 (Version 1)
Quarter: 2020Q4

REPORT INFORMATION
  Report Type: Spontaneous
  Country: IL (occurrence: IL)
  Receive Date: 20201207
  Receipt Date: 20201207
  Transmission Date: 20210114
  Serious: Yes (Other)
  Sender: FDA-Public Use
  Company Number: IL-ROCHE-2720178

PATIENT
  Age: 63 Year
  Sex: Male

DRUGS (21)
  1. CYTARABINE. [Concomitant]
     Active Substance: CYTARABINE
     Dosage: 1 CYCLE, OUTCOME: DISEASE PROGRESSION
     Dates: start: 202006, end: 202006
  2. MABTHERA [Suspect]
     Active Substance: RITUXIMAB
     Indication: LYMPHOMA TRANSFORMATION
     Dosage: 6 CYCLES, OUTCOME: COMPLETED REMISSION
     Route: 065
     Dates: start: 201310, end: 201403
  3. MABTHERA [Suspect]
     Active Substance: RITUXIMAB
     Dosage: 1 CYCLE, OUTCOME: DISEASE PROGRESSION
     Route: 065
     Dates: start: 202007, end: 202007
  4. PREDNISONE. [Suspect]
     Active Substance: PREDNISONE
     Dosage: 6 CYCLES, OUTCOME: COMPLETE REMISSION
     Route: 065
     Dates: start: 201712, end: 201806
  5. POLATUZUMAB VEDOTIN. [Concomitant]
     Active Substance: POLATUZUMAB VEDOTIN
     Dosage: 1 CYCLE, OUTCOME: DISEASE PROGRESSION
     Dates: start: 202006, end: 202006
  6. MABTHERA [Suspect]
     Active Substance: RITUXIMAB
     Indication: DIFFUSE LARGE B-CELL LYMPHOMA
     Dosage: 6 CYCLES, OUTCOME: COMPLETE REMISSION
     Route: 065
     Dates: start: 201410, end: 201501
  7. DOXORUBICIN [Suspect]
     Active Substance: DOXORUBICIN
     Dosage: 2 CYCLES, OUTCOME: COMPLETE REMISSION
     Route: 065
     Dates: start: 201712
  8. PREDNISONE. [Suspect]
     Active Substance: PREDNISONE
     Indication: LYMPHOMA TRANSFORMATION
     Dosage: 6 CYCLES, OUTCOME: COMPLETED REMISSION
     Route: 065
     Dates: start: 201310, end: 201403
  9. GEMCITABINE. [Concomitant]
     Active Substance: GEMCITABINE
     Indication: PRODUCT USED FOR UNKNOWN INDICATION
     Dosage: OUTCOME: COMPLETE REMISSION
     Route: 065
     Dates: start: 201807, end: 202001
  10. VINCRISTINE [Suspect]
     Active Substance: VINCRISTINE
     Dosage: 6 CYCLES, OUTCOME: COMPLETE REMISSION
     Route: 065
     Dates: start: 201712, end: 201806
  11. CISPLATIN. [Concomitant]
     Active Substance: CISPLATIN
     Dosage: 1 CYCLE, OUTCOME: DISEASE PROGRESSION
     Dates: start: 202006, end: 202006
  12. CYCLOPHOSPHAMIDE. [Suspect]
     Active Substance: CYCLOPHOSPHAMIDE
     Indication: LYMPHOMA TRANSFORMATION
     Dosage: 6 CYCLES, OUTCOME: COMPLETE REMISSION
     Route: 065
     Dates: start: 201310, end: 201403
  13. CYCLOPHOSPHAMIDE. [Suspect]
     Active Substance: CYCLOPHOSPHAMIDE
     Dosage: 6 CYCLES, OUTCOME: COMPLETE REMISSION
     Route: 065
     Dates: start: 201712, end: 201806
  14. DOXORUBICIN [Suspect]
     Active Substance: DOXORUBICIN
     Indication: LYMPHOMA TRANSFORMATION
     Dosage: 6 CYCLES, OUTCOME: COMPLETED REMISSION
     Route: 065
     Dates: start: 201310, end: 201403
  15. MABTHERA [Suspect]
     Active Substance: RITUXIMAB
     Dosage: 1 CYCLE, OUTCOME: DISEASE PROGRESSION
     Route: 065
     Dates: start: 202006, end: 202006
  16. ETOPOSIDE. [Concomitant]
     Active Substance: ETOPOSIDE
     Indication: LYMPHOMA TRANSFORMATION
     Dosage: 4 CYCLES, OUTCOME: COMPLETE REMISSION
     Dates: start: 201806
  17. DEXAMETHASONE. [Concomitant]
     Active Substance: DEXAMETHASONE
     Dosage: 1 CYCLE, OUTCOME: DISEASE PROGRESSION
     Dates: start: 202006, end: 202006
  18. BENDAMUSTINE [Concomitant]
     Active Substance: BENDAMUSTINE
     Dosage: 1 CYCLE, OUTCOME: DISEASE PROGRESSION
     Route: 065
     Dates: start: 202007, end: 202007
  19. MABTHERA [Suspect]
     Active Substance: RITUXIMAB
     Dosage: 6 CYCLES, OUTCOME: COMPLETE REMISSION
     Route: 065
     Dates: start: 201712, end: 201806
  20. VINCRISTINE [Suspect]
     Active Substance: VINCRISTINE
     Indication: LYMPHOMA TRANSFORMATION
     Dosage: 6 CYCLES, OUTCOME: COMPLETE REMISSION
     Route: 065
     Dates: start: 201310, end: 201403
  21. BENDAMUSTINE [Concomitant]
     Active Substance: BENDAMUSTINE
     Indication: LYMPHOMA TRANSFORMATION
     Dosage: 6 CYCLES, OUTCOME: COMPLETE REMISSION
     Route: 065
     Dates: start: 201410, end: 201501

REACTIONS (1)
  - Lymphoma transformation [Unknown]
